FAERS Safety Report 7296729-0 (Version None)
Quarter: 2011Q1

REPORT INFORMATION
  Report Type: 
  Country: None (occurrence: None)
  Receive Date: 20110204
  Receipt Date: 20110118
  Transmission Date: 20110831
  Serious: Yes (Hospitalization, Other)
  Sender: FDA-Public Use
  Company Number: PPC201100009

PATIENT
  Age: 18 Month
  Sex: Male

DRUGS (6)
  1. IFOSFAMIDE [Suspect]
     Indication: RHABDOMYOSARCOMA
     Dosage: 9 CYCLES
  2. EPIRUBICIN HYDROCHLORIDE [Concomitant]
  3. CARBOPLATIN [Concomitant]
  4. ACTINOMYCIN D [Concomitant]
  5. VINCRISTINE [Concomitant]
  6. ETOPOSIDE [Concomitant]

REACTIONS (1)
  - THYROID CANCER [None]
